FAERS Safety Report 11946856 (Version 3)
Quarter: 2016Q2

REPORT INFORMATION
  Report Type: Report from Study
  Country: US (occurrence: US)
  Receive Date: 20160125
  Receipt Date: 20160421
  Transmission Date: 20160815
  Serious: No
  Sender: FDA-Public Use
  Company Number: US-AMGEN-USASL2015140949

PATIENT
  Age: 77 Year
  Sex: Female

DRUGS (2)
  1. REPATHA [Suspect]
     Active Substance: EVOLOCUMAB
     Indication: HYPERCHOLESTEROLAEMIA
     Dosage: 140 MG, Q2WK
     Route: 065
     Dates: start: 2015
  2. REPATHA [Suspect]
     Active Substance: EVOLOCUMAB
     Dosage: UNK
     Route: 065

REACTIONS (10)
  - Influenza like illness [Recovering/Resolving]
  - Pain in jaw [Recovering/Resolving]
  - Feeling abnormal [Recovering/Resolving]
  - Cheilitis [Recovering/Resolving]
  - Acne [Recovering/Resolving]
  - Fatigue [Recovering/Resolving]
  - Pain [Recovering/Resolving]
  - Skin reaction [Recovered/Resolved]
  - Device issue [Unknown]
  - Myalgia [Unknown]

NARRATIVE: CASE EVENT DATE: 20150204
